FAERS Safety Report 12439666 (Version 1)
Quarter: 2016Q2

REPORT INFORMATION
  Report Type: Spontaneous
  Country: FR (occurrence: FR)
  Receive Date: 20160606
  Receipt Date: 20160606
  Transmission Date: 20160815
  Serious: Yes (Hospitalization)
  Sender: FDA-Public Use
  Company Number: FR-ASCEND THERAPEUTICS-1053382

PATIENT
  Age: 48 Year
  Sex: Female

DRUGS (8)
  1. PRIVIGEN [Concomitant]
     Active Substance: HUMAN IMMUNOGLOBULIN G
     Route: 041
  2. XANAX [Concomitant]
     Active Substance: ALPRAZOLAM
     Route: 048
  3. ESTROGEL [Suspect]
     Active Substance: ESTRADIOL
     Route: 062
  4. FLUCANIZOLE [Concomitant]
     Route: 048
     Dates: start: 20160101
  5. KARDEGIC [Concomitant]
     Active Substance: ASPIRIN LYSINE
     Route: 048
  6. SPRYCEL [Concomitant]
     Active Substance: DASATINIB
     Route: 048
     Dates: start: 20110101, end: 20160428
  7. DESLORATADINE. [Concomitant]
     Active Substance: DESLORATADINE
     Route: 048
  8. VENTOLINE [Concomitant]
     Active Substance: ALBUTEROL

REACTIONS (2)
  - Cardiac failure [Not Recovered/Not Resolved]
  - Pulmonary arterial hypertension [Not Recovered/Not Resolved]

NARRATIVE: CASE EVENT DATE: 20160401
